FAERS Safety Report 6775362-0 (Version None)
Quarter: 2010Q2

REPORT INFORMATION
  Report Type: 
  Country: None (occurrence: None)
  Receive Date: 20100615
  Receipt Date: 20100615
  Transmission Date: 20101027
  Serious: Yes (Other)
  Sender: FDA-Public Use
  Company Number: None

PATIENT
  Sex: Male

DRUGS (1)
  1. REGULAR INSULIN [Suspect]
     Indication: DIABETES MELLITUS

REACTIONS (3)
  - HEADACHE [None]
  - MALAISE [None]
  - TREATMENT NONCOMPLIANCE [None]
